FAERS Safety Report 5263509-7 (Version None)
Quarter: 2007Q1

REPORT INFORMATION
  Report Type: 
  Country: None (occurrence: None)
  Receive Date: 20061213
  Receipt Date: 20040203
  Transmission Date: 20070707
  Serious: Yes (Hospitalization)
  Sender: FDA-Public Use
  Company Number: 2003UW16381

PATIENT
  Age: 34 Year
  Sex: Male
  Weight: 86.637 kg

DRUGS (8)
  1. IRESSA [Suspect]
     Indication: NON-SMALL CELL LUNG CANCER
     Dosage: 250 MG QD PO
     Route: 048
     Dates: start: 20030601, end: 20040101
  2. IBUPROFEN [Concomitant]
  3. IMODIUM [Concomitant]
  4. SEREVENT [Concomitant]
  5. SENOKOT [Concomitant]
  6. COUMADIN [Concomitant]
  7. PRILOSEC [Concomitant]
  8. PAXIL [Concomitant]

REACTIONS (1)
  - PANCREATITIS [None]
